FAERS Safety Report 5706038-6 (Version None)
Quarter: 2008Q2

REPORT INFORMATION
  Report Type: 
  Country: None (occurrence: None)
  Receive Date: 20080415
  Receipt Date: 20080403
  Transmission Date: 20081010
  Serious: Yes (Disabling, Other)
  Sender: FDA-Public Use
  Company Number: US-PFIZER INC-2007047876

PATIENT
  Sex: Female
  Weight: 52.2 kg

DRUGS (10)
  1. CHANTIX [Suspect]
     Indication: SMOKING CESSATION THERAPY
     Route: 048
  2. NEURONTIN [Concomitant]
     Indication: NEUROPATHY PERIPHERAL
  3. PROMETHAZINE [Concomitant]
  4. CALTRATE [Concomitant]
  5. XANAX [Concomitant]
  6. MORPHINE [Concomitant]
  7. LEXAPRO [Concomitant]
  8. NASONEX [Concomitant]
  9. TYLENOL (CAPLET) [Concomitant]
  10. DETROL LA [Concomitant]

REACTIONS (7)
  - ANXIETY [None]
  - DYSURIA [None]
  - HYPERSOMNIA [None]
  - NOCTURIA [None]
  - RENAL DISORDER [None]
  - URINARY INCONTINENCE [None]
  - URINARY TRACT INFECTION [None]
